FAERS Safety Report 8439387 (Version 2)
Quarter: 2013Q2

REPORT INFORMATION
  Report Type: Spontaneous
  Country: US (occurrence: None)
  Receive Date: 20120104
  Receipt Date: 20120508
  Transmission Date: 20140414
  Serious: Yes (Other)
  Sender: FDA-Public Use
  Company Number: 2011HGS-002871

PATIENT
  Age: 59 Year
  Sex: Female
  Weight: 69.85 kg

DRUGS (11)
  1. BENLYSTA [Suspect]
     Indication: SYSTEMIC LUPUS ERYTHEMATOSUS
     Dosage: 1 IN 28 D, INTRAVENOUS DRIP
     Route: 041
     Dates: start: 20111012
  2. BENLYSTA [Suspect]
     Indication: SYSTEMIC LUPUS ERYTHEMATOSUS
     Dosage: 1 IN 28 D, INTRAVENOUS DRIP
     Route: 041
     Dates: start: 20111012
  3. PREDNISONE [Concomitant]
  4. METHOTREXATE [Concomitant]
  5. CELEXA [Concomitant]
  6. SYNTHROID [Concomitant]
  7. HYDROCHLOROTHIAZIDE (HYDROCHLOROTHIAZIDE) [Concomitant]
  8. DIGOXIN (DIGOXIN) [Concomitant]
  9. ATENOLOL (ATENOLOL) [Concomitant]
  10. SYNVISC (HYALURONATE SODIUM) [Concomitant]
  11. PLAQUENIL (HYDROXYCHLOROQUINE SULFATE) / ORAL / TABLET, FILM COATED / 200 MILLIGRAM(S) [Concomitant]

REACTIONS (6)
  - SKIN LESION [None]
  - OEDEMA PERIPHERAL [None]
  - MUSCULOSKELETAL STIFFNESS [None]
  - PARAESTHESIA [None]
  - PRURITUS [None]
  - Herpes zoster [None]
